FAERS Safety Report 7732284-6 (Version None)
Quarter: 2011Q3

REPORT INFORMATION
  Report Type: 
  Country: None (occurrence: None)
  Receive Date: 20110906
  Receipt Date: 20110824
  Transmission Date: 20111222
  Serious: No
  Sender: FDA-Public Use
  Company Number: US-AMGEN-USASP2011043419

PATIENT
  Age: 73 Year
  Sex: Female

DRUGS (4)
  1. LIPITOR [Concomitant]
     Dosage: UNK
  2. NEXIUM [Concomitant]
     Dosage: UNK
  3. PROLIA [Suspect]
     Indication: OSTEOPOROSIS POSTMENOPAUSAL
     Dosage: 60 MG, UNK
  4. CALCITRIOL [Concomitant]
     Dosage: UNK

REACTIONS (4)
  - BLOOD CALCIUM DECREASED [None]
  - LIMB DISCOMFORT [None]
  - HYPERTHYROIDISM [None]
  - VITAMIN D DECREASED [None]
